FAERS Safety Report 8136191-9 (Version None)
Quarter: 2012Q1

REPORT INFORMATION
  Report Type: 
  Country: None (occurrence: None)
  Receive Date: 20120214
  Receipt Date: 20120202
  Transmission Date: 20120608
  Serious: Yes (Hospitalization, Other)
  Sender: FDA-Public Use
  Company Number: US-ELI_LILLY_AND_COMPANY-US201103004925

PATIENT
  Sex: Female

DRUGS (12)
  1. FORTEO [Suspect]
     Dosage: 20 UG, QD
     Route: 065
  2. FORTEO [Suspect]
     Dosage: 20 UG, QD
     Dates: end: 20111101
  3. AZOR                               /06230801/ [Concomitant]
     Indication: HYPERTENSION
  4. PREDNISONE TAB [Concomitant]
     Dosage: 2 MG, QD
  5. ASPIRIN [Concomitant]
     Dosage: 81 MG, UNK
  6. ANALGESICS [Concomitant]
     Indication: PAIN
  7. VITAMIN D [Concomitant]
     Dosage: 50000 U, EVERY OTHER WEEK
  8. CRESTOR [Concomitant]
     Indication: BLOOD CHOLESTEROL
     Dosage: 20 MG, QD
  9. FOLIC ACID [Concomitant]
     Dosage: 2 MG, QD
  10. FORTEO [Suspect]
     Dosage: 20 UG, QD
     Route: 065
     Dates: start: 20111201
  11. FORTEO [Suspect]
     Indication: OSTEOPOROSIS
     Dosage: 20 UG, QD
     Route: 065
     Dates: start: 20110330
  12. COSOPT [Concomitant]
     Dosage: 2 DF, QD

REACTIONS (5)
  - INJECTION SITE NODULE [None]
  - HYPERTENSION [None]
  - FRACTURE MALUNION [None]
  - BLOOD CALCIUM INCREASED [None]
  - BONE DISORDER [None]
